FAERS Safety Report 6077211-5 (Version None)
Quarter: 2009Q1

REPORT INFORMATION
  Report Type: 
  Country: None (occurrence: None)
  Receive Date: 20090211
  Receipt Date: 20090203
  Transmission Date: 20090719
  Serious: Yes (Hospitalization, Other)
  Sender: FDA-Public Use
  Company Number: 2009SP002632

PATIENT
  Age: 59 Year
  Sex: Female

DRUGS (8)
  1. TEMOZOLOMIDE [Suspect]
     Indication: GLIOBLASTOMA MULTIFORME
     Dosage: 75 MG/M2; QD; 150 MG/M2 QD
  2. DEXAMETHASONE TAB [Concomitant]
  3. PHENOBARBITAL TAB [Concomitant]
  4. SULFAMETHOXAZOLE AND TRIMETHOPRIM [Concomitant]
  5. ................................ [Concomitant]
  6. FLUOXETINE [Concomitant]
  7. ATORVASTATIN [Concomitant]
  8. OMEPRAZOLE [Concomitant]

REACTIONS (6)
  - HEPATITIS [None]
  - LUNG INFILTRATION [None]
  - LUNG NEOPLASM [None]
  - NORMOCHROMIC NORMOCYTIC ANAEMIA [None]
  - PRODUCTIVE COUGH [None]
  - PYREXIA [None]
